FAERS Safety Report 8049972-7 (Version None)
Quarter: 2012Q1

REPORT INFORMATION
  Report Type: 
  Country: None (occurrence: None)
  Receive Date: 20120117
  Receipt Date: 20120109
  Transmission Date: 20120608
  Serious: Yes (Other)
  Sender: FDA-Public Use
  Company Number: FR-PFIZER INC-2011201783

PATIENT
  Age: 47 Year
  Sex: Male
  Weight: 85 kg

DRUGS (5)
  1. VFEND [Suspect]
     Dosage: 200 MG, 2X/DAY
     Dates: start: 20110706
  2. LAMISIL [Concomitant]
     Indication: FUNGAL INFECTION
     Dosage: 1 DF, 1X/DAY
     Route: 048
     Dates: start: 20061101
  3. AMLODIPINE [Concomitant]
     Indication: HYPERTENSION
  4. VFEND [Suspect]
     Indication: FUSARIUM INFECTION
     Dosage: 400 MG, 2X/DAY
     Route: 048
     Dates: start: 20060701, end: 20110706
  5. ATENOLOL [Concomitant]
     Indication: HYPERTENSION

REACTIONS (3)
  - ARTHRALGIA [None]
  - VITILIGO [None]
  - AMYOTROPHY [None]
